FAERS Safety Report 7481357-4 (Version None)
Quarter: 2011Q2

REPORT INFORMATION
  Report Type: 
  Country: None (occurrence: None)
  Receive Date: 20110516
  Receipt Date: 20110509
  Transmission Date: 20111010
  Serious: Yes (Death, Hospitalization, Other)
  Sender: FDA-Public Use
  Company Number: MX-SANOFI-AVENTIS-2011SA028378

PATIENT
  Age: 55 Year
  Sex: Female
  Weight: 47 kg

DRUGS (4)
  1. ALL OTHER THERAPEUTIC PRODUCTS [Concomitant]
     Indication: GASTRITIS
     Route: 065
     Dates: end: 20110401
  2. ALL OTHER THERAPEUTIC PRODUCTS [Concomitant]
     Route: 065
     Dates: end: 20110401
  3. ORAL ANTIDIABETICS [Concomitant]
     Indication: TYPE 2 DIABETES MELLITUS
     Route: 048
     Dates: end: 20110301
  4. LANTUS [Suspect]
     Indication: TYPE 2 DIABETES MELLITUS
     Route: 058
     Dates: end: 20110301

REACTIONS (4)
  - MELAENA [None]
  - ABDOMINAL DISTENSION [None]
  - GASTROINTESTINAL HAEMORRHAGE [None]
  - ABDOMINAL PAIN UPPER [None]
